FAERS Safety Report 6423813-3 (Version None)
Quarter: 2009Q4

REPORT INFORMATION
  Report Type: 
  Country: None (occurrence: None)
  Receive Date: 20091028
  Receipt Date: 20091013
  Transmission Date: 20100525
  Serious: Yes (Hospitalization, Other)
  Sender: FDA-Public Use
  Company Number: PAR_03234_2009

PATIENT
  Age: 55 Year
  Sex: Male

DRUGS (8)
  1. IBUPROFEN [Suspect]
     Indication: DRUG USE FOR UNKNOWN INDICATION
     Dosage: (DF ORAL)
     Route: 048
     Dates: start: 20081127
  2. ASPIRIN [Suspect]
     Indication: DRUG USE FOR UNKNOWN INDICATION
     Dosage: (DF)
  3. CLOZARIL [Suspect]
     Indication: SCHIZOPHRENIA
     Dosage: (250 MG, ORAL)
     Route: 048
     Dates: start: 20080104
  4. AMLODIPINE [Concomitant]
  5. DOXAZOSIN MESYLATE [Concomitant]
  6. LANSOPRAZOLE [Concomitant]
  7. RAMIPRIL [Concomitant]
  8. SIMVASTATIN [Concomitant]

REACTIONS (2)
  - HAEMOGLOBIN DECREASED [None]
  - PEPTIC ULCER HAEMORRHAGE [None]
